FAERS Safety Report 6081192-8 (Version None)
Quarter: 2009Q1

REPORT INFORMATION
  Report Type: 
  Country: None (occurrence: None)
  Receive Date: 20090213
  Receipt Date: 20090206
  Transmission Date: 20090719
  Serious: Yes (Hospitalization)
  Sender: FDA-Public Use
  Company Number: TRP_06007_2008

PATIENT
  Sex: Female
  Weight: 94.8018 kg

DRUGS (5)
  1. RIBASPHERE [Suspect]
     Indication: HEPATITIS C
     Dosage: (600 MG BID ORAL)
     Route: 048
     Dates: start: 20080803
  2. PEGASYS [Suspect]
     Indication: HEPATITIS C
     Dosage: (180 ?G 1X/WEEK SUBCUTANEOUS)
     Route: 058
     Dates: start: 20080803
  3. INEXIUM /01479302/ [Concomitant]
  4. ZOLOFT [Concomitant]
  5. NORVASC [Concomitant]

REACTIONS (25)
  - ANAEMIA [None]
  - ANOREXIA [None]
  - ASTHENIA [None]
  - BALANCE DISORDER [None]
  - CHROMATURIA [None]
  - COLD SWEAT [None]
  - CONSTIPATION [None]
  - CONTUSION [None]
  - CRYING [None]
  - DEPRESSION [None]
  - DIZZINESS [None]
  - EAR INFECTION [None]
  - FATIGUE [None]
  - FEELING COLD [None]
  - HEPATIC ENZYME INCREASED [None]
  - IRRITABILITY [None]
  - MENIERE'S DISEASE [None]
  - NASOPHARYNGITIS [None]
  - NAUSEA [None]
  - NO THERAPEUTIC RESPONSE [None]
  - PALLOR [None]
  - SINUSITIS [None]
  - TREMOR [None]
  - WEIGHT DECREASED [None]
  - WHITE BLOOD CELL COUNT DECREASED [None]
